FAERS Safety Report 8315549-9 (Version None)
Quarter: 2012Q2

REPORT INFORMATION
  Report Type: 
  Country: None (occurrence: None)
  Receive Date: 20120426
  Receipt Date: 20120420
  Transmission Date: 20120825
  Serious: Yes (Other)
  Sender: FDA-Public Use
  Company Number: JP-PFIZER INC-2012097930

PATIENT
  Age: 61 Year
  Sex: Female

DRUGS (1)
  1. ZITHROMAX [Suspect]
     Indication: PERIODONTAL DISEASE
     Dosage: 500 MG, 1X/DAY
     Route: 048
     Dates: start: 20120412, end: 20120412

REACTIONS (4)
  - JAUNDICE [None]
  - PARAESTHESIA [None]
  - TOXIC EPIDERMAL NECROLYSIS [None]
  - PARALYSIS [None]
